FAERS Safety Report 6282822-8 (Version None)
Quarter: 2009Q3

REPORT INFORMATION
  Report Type: 
  Country: None (occurrence: None)
  Receive Date: 20090722
  Receipt Date: 20090722
  Transmission Date: 20100115
  Serious: Yes (Other)
  Sender: FDA-Public Use
  Company Number: None

PATIENT
  Age: 65 Year
  Sex: Male
  Weight: 86.1834 kg

DRUGS (1)
  1. BACTRIM DS [Suspect]
     Indication: BACTERIAL INFECTION
     Dosage: ONE PILL EVERY TWELVE HOURS PO
     Route: 048
     Dates: start: 20090709, end: 20090711

REACTIONS (8)
  - ASTHENIA [None]
  - DYSURIA [None]
  - EATING DISORDER [None]
  - GASTRIC DISORDER [None]
  - GASTROINTESTINAL DISORDER [None]
  - HEADACHE [None]
  - SOMNOLENCE [None]
  - TREMOR [None]
